FAERS Safety Report 18459084 (Version 2)
Quarter: 2020Q4

REPORT INFORMATION
  Report Type: Spontaneous
  Country: US (occurrence: US)
  Receive Date: 20201103
  Receipt Date: 20201120
  Transmission Date: 20210114
  Serious: No
  Sender: FDA-Public Use
  Company Number: US-TAKEDA-US202034679

PATIENT
  Age: 64 Year
  Sex: Female

DRUGS (12)
  1. ZOLOFT [Concomitant]
     Active Substance: SERTRALINE HYDROCHLORIDE
     Dosage: UNK
  2. VYVANSE [Suspect]
     Active Substance: LISDEXAMFETAMINE DIMESYLATE
     Indication: DEPRESSION
     Dosage: 10 UNK
     Route: 065
  3. VYVANSE [Suspect]
     Active Substance: LISDEXAMFETAMINE DIMESYLATE
     Indication: OBSESSIVE-COMPULSIVE DISORDER
     Dosage: 20 MILLIGRAM
     Route: 065
     Dates: start: 20190901
  4. VYVANSE [Suspect]
     Active Substance: LISDEXAMFETAMINE DIMESYLATE
     Indication: BIPOLAR DISORDER
     Dosage: 50 MILLIGRAM
     Route: 065
     Dates: start: 20190901
  5. ADDERALL XR [Concomitant]
     Active Substance: AMPHETAMINE ASPARTATE\AMPHETAMINE SULFATE\DEXTROAMPHETAMINE SACCHARATE\DEXTROAMPHETAMINE SULFATE
     Dosage: UNK
  6. LUVOX [Concomitant]
     Active Substance: FLUVOXAMINE MALEATE
     Dosage: UNK
  7. IRON OXIDES [Concomitant]
     Active Substance: FERRIC OXIDE RED
     Dosage: UNK
  8. VYVANSE [Suspect]
     Active Substance: LISDEXAMFETAMINE DIMESYLATE
     Indication: ANXIETY
     Dosage: 60 MILLIGRAM
     Route: 065
  9. VYVANSE [Suspect]
     Active Substance: LISDEXAMFETAMINE DIMESYLATE
     Indication: ATTENTION DEFICIT HYPERACTIVITY DISORDER
     Dosage: 70 MILLIGRAM
     Route: 065
  10. VALIUM [Suspect]
     Active Substance: DIAZEPAM
     Indication: PAIN IN EXTREMITY
     Dosage: UNK
     Route: 065
  11. BERBERINE [Concomitant]
     Active Substance: BERBERINE
     Dosage: UNK
  12. GLUTEN [Concomitant]
     Active Substance: WHEAT GLUTEN
     Dosage: UNK

REACTIONS (20)
  - Nervousness [Unknown]
  - Palpitations [Unknown]
  - Suspected COVID-19 [Unknown]
  - Irritable bowel syndrome [Unknown]
  - Headache [Unknown]
  - COVID-19 [Unknown]
  - Therapeutic product effect decreased [Unknown]
  - Abdominal pain upper [Unknown]
  - Depression [Recovered/Resolved]
  - Drug ineffective for unapproved indication [Unknown]
  - Nausea [Unknown]
  - Euphoric mood [Unknown]
  - Malaise [Unknown]
  - Migraine [Unknown]
  - Anosmia [Unknown]
  - Eye pain [Recovered/Resolved]
  - Back pain [Unknown]
  - Weight decreased [Unknown]
  - Pain in extremity [Not Recovered/Not Resolved]
  - Constipation [Unknown]

NARRATIVE: CASE EVENT DATE: 202002
